FAERS Safety Report 9720449 (Version 1)
Quarter: 2013Q4

REPORT INFORMATION
  Report Type: Report from Study
  Country: CA (occurrence: CA)
  Receive Date: 20131129
  Receipt Date: 20131129
  Transmission Date: 20140711
  Serious: Yes (Hospitalization)
  Sender: FDA-Public Use
  Company Number: CA-JNJFOC-20131114393

PATIENT
  Sex: Male

DRUGS (10)
  1. REMICADE [Suspect]
     Indication: COLITIS ULCERATIVE
     Route: 042
     Dates: start: 20130815
  2. REMICADE [Suspect]
     Indication: COLITIS ULCERATIVE
     Route: 042
     Dates: start: 20131121
  3. PREDNISONE [Concomitant]
     Route: 065
  4. METFORMIN [Concomitant]
     Route: 065
  5. ASACOL [Concomitant]
     Route: 065
  6. ESOMEPRAZOLE [Concomitant]
     Route: 065
  7. CORTIFOAM [Concomitant]
     Route: 065
  8. ZOPICLONE [Concomitant]
     Route: 065
  9. SALOFALK [Concomitant]
     Route: 065
  10. TRIIODOTHYRONINE [Concomitant]
     Route: 065

REACTIONS (1)
  - Pulmonary thrombosis [Recovering/Resolving]
